FAERS Safety Report 12433701 (Version 2)
Quarter: 2016Q2

REPORT INFORMATION
  Report Type: Spontaneous
  Country: US (occurrence: US)
  Receive Date: 20160603
  Receipt Date: 20160606
  Transmission Date: 20160815
  Serious: No
  Sender: FDA-Public Use
  Company Number: US-TEVA-660816USA

PATIENT
  Age: 9 Year
  Sex: Male

DRUGS (1)
  1. QVAR [Suspect]
     Active Substance: BECLOMETHASONE DIPROPIONATE
     Dosage: 80 MILLIGRAM DAILY;
     Route: 065

REACTIONS (5)
  - Diarrhoea [Unknown]
  - Vomiting [Unknown]
  - Asthma [Unknown]
  - Dehydration [Unknown]
  - Drug dose omission [Unknown]
